FAERS Safety Report 20692548 (Version 1)
Quarter: 2022Q2

REPORT INFORMATION
  Report Type: Spontaneous
  Country: US (occurrence: None)
  Receive Date: 20220407
  Receipt Date: 20220407
  Transmission Date: 20220721
  Serious: No
  Sender: FDA-Public Use
  Company Number: None

PATIENT
  Age: 26 Year
  Sex: Female

DRUGS (1)
  1. CYPROHEPTADINE HYDROCHLORIDE\LYSINE HYDROCHLORIDE\VITAMINS [Suspect]
     Active Substance: CYPROHEPTADINE HYDROCHLORIDE\LYSINE HYDROCHLORIDE\VITAMINS

REACTIONS (3)
  - Liver disorder [None]
  - Aspartate aminotransferase increased [None]
  - Alanine aminotransferase increased [None]
